FAERS Safety Report 6654050-5 (Version None)
Quarter: 2010Q1

REPORT INFORMATION
  Report Type: 
  Country: None (occurrence: None)
  Receive Date: 20100326
  Receipt Date: 20100315
  Transmission Date: 20100710
  Serious: Yes (Hospitalization, Other)
  Sender: FDA-Public Use
  Company Number: US-ELI_LILLY_AND_COMPANY-US201003005475

PATIENT
  Sex: Female

DRUGS (8)
  1. FORTEO [Suspect]
     Indication: OSTEOPOROSIS
     Dosage: 20 UG, DAILY (1/D)
     Dates: start: 20091001
  2. CYMBALTA [Concomitant]
     Indication: DEPRESSION
     Dosage: 60 MG, DAILY (1/D)
     Dates: start: 20100201
  3. COUMADIN [Concomitant]
  4. SEROQUEL [Concomitant]
  5. DILAUDID [Concomitant]
  6. LORAZEPAM [Concomitant]
  7. ENABLEX /01760401/ [Concomitant]
  8. SYNTHROID [Concomitant]

REACTIONS (5)
  - ALOPECIA [None]
  - HIP ARTHROPLASTY [None]
  - LUNG DISORDER [None]
  - PULMONARY EMBOLISM [None]
  - THROMBOSIS [None]
